FAERS Safety Report 10925237 (Version 1)
Quarter: 2015Q1

REPORT INFORMATION
  Report Type: Spontaneous
  Country: US (occurrence: None)
  Receive Date: 20150316
  Receipt Date: 20150316
  Transmission Date: 20150721
  Serious: Yes (Other)
  Sender: FDA-Public Use
  Company Number: None

PATIENT
  Age: 24 Year
  Sex: Female
  Weight: 90.7 kg

DRUGS (1)
  1. AZTREONAM. [Suspect]
     Active Substance: AZTREONAM

REACTIONS (3)
  - Infusion related reaction [None]
  - Drug hypersensitivity [None]
  - Dysphagia [None]

NARRATIVE: CASE EVENT DATE: 20141110
